FAERS Safety Report 20317834 (Version 1)
Quarter: 2022Q1

REPORT INFORMATION
  Report Type: Spontaneous
  Country: CN (occurrence: CN)
  Receive Date: 20220110
  Receipt Date: 20220110
  Transmission Date: 20220424
  Serious: Yes (Other)
  Sender: FDA-Public Use
  Company Number: CN-PFIZER INC-202200000926

PATIENT
  Age: 35 Year
  Sex: Female

DRUGS (2)
  1. CYTARABINE [Suspect]
     Active Substance: CYTARABINE
     Indication: Acute myeloid leukaemia
     Dosage: 200 MG, 1X/DAY
     Dates: start: 20211229, end: 20211230
  2. IDARUBICIN HYDROCHLORIDE [Suspect]
     Active Substance: IDARUBICIN HYDROCHLORIDE
     Indication: Acute myeloid leukaemia
     Dosage: 20 MG, 1X/DAY
     Dates: start: 20211229, end: 20211230

REACTIONS (1)
  - Reflux laryngitis [Recovering/Resolving]

NARRATIVE: CASE EVENT DATE: 20211229
